FAERS Safety Report 7391762-2 (Version None)
Quarter: 2011Q2

REPORT INFORMATION
  Report Type: 
  Country: None (occurrence: None)
  Receive Date: 20110404
  Receipt Date: 20110221
  Transmission Date: 20111010
  Serious: Yes (Other)
  Sender: FDA-Public Use
  Company Number: DE-AMGEN-DEUCT2010006929

PATIENT
  Age: 43 Year
  Sex: Male
  Weight: 62 kg

DRUGS (9)
  1. OXALIPLATIN [Concomitant]
     Indication: COLORECTAL CANCER
     Dosage: UNK
     Dates: start: 20101103, end: 20101117
  2. MINOCYCLIN [Concomitant]
     Dosage: UNK
     Route: 048
     Dates: start: 20101115
  3. PANITUMUMAB [Suspect]
     Indication: COLORECTAL CANCER
     Dosage: 366 MG, UNK
     Dates: start: 20101103
  4. CONTRAST MEDIUM [Concomitant]
     Indication: COMPUTERISED TOMOGRAM
     Route: 042
     Dates: start: 20101027
  5. FLUOROURACIL [Concomitant]
     Indication: COLORECTAL CANCER
     Dosage: UNK
     Dates: start: 20101103, end: 20101117
  6. BARILUX [Concomitant]
     Indication: COMPUTERISED TOMOGRAM
     Route: 048
     Dates: start: 20101027
  7. LEUCOVORIN [Concomitant]
     Dosage: UNK
     Dates: start: 20101103, end: 20101117
  8. FORTECORTIN [Concomitant]
     Dosage: 16 MG, UNK
     Route: 042
     Dates: start: 20101103
  9. KEVATRIL [Concomitant]
     Indication: NAUSEA
     Dosage: 1 MG, UNK
     Route: 042
     Dates: start: 20101103

REACTIONS (1)
  - TRISMUS [None]
